FAERS Safety Report 21211308 (Version 2)
Quarter: 2022Q3

REPORT INFORMATION
  Report Type: Report from Study
  Country: FR (occurrence: None)
  Receive Date: 20220815
  Receipt Date: 20220825
  Transmission Date: 20221027
  Serious: Yes (Hospitalization)
  Sender: FDA-Public Use
  Company Number: FR-ROCHE-3154180

PATIENT
  Age: 84 Year
  Sex: Male
  Weight: 90 kg

DRUGS (2)
  1. ATEZOLIZUMAB [Suspect]
     Active Substance: ATEZOLIZUMAB
     Indication: Bladder transitional cell carcinoma
     Dosage: LAST DAILY DOSE PRIOR TO AE: 1200 MG, 20/JUL/2022
     Route: 041
     Dates: start: 20220720, end: 20220720
  2. BCG VACCINE [Suspect]
     Active Substance: BCG VACCINE
     Indication: Bladder transitional cell carcinoma
     Dosage: LAST DOSE ADMINISTERED ON 27/JUL/2022, 50 ML
     Route: 043
     Dates: start: 20220720, end: 20220727

REACTIONS (1)
  - Disseminated Bacillus Calmette-Guerin infection [Recovering/Resolving]

NARRATIVE: CASE EVENT DATE: 20220731
